FAERS Safety Report 21147661 (Version 1)
Quarter: 2022Q3

REPORT INFORMATION
  Report Type: Spontaneous
  Country: US (occurrence: US)
  Receive Date: 20220729
  Receipt Date: 20220729
  Transmission Date: 20221027
  Serious: No
  Sender: FDA-Public Use
  Company Number: US-ABBVIE-22K-163-4291390-00

PATIENT
  Sex: Male

DRUGS (2)
  1. NIASPAN [Suspect]
     Active Substance: NIACIN
     Indication: Cerebrovascular accident
     Route: 048
     Dates: start: 2012, end: 2021
  2. NIASPAN [Suspect]
     Active Substance: NIACIN
     Indication: Lipoprotein increased
     Dosage: GENERIC OF NIASPAN
     Route: 048

REACTIONS (3)
  - Lipoprotein increased [Unknown]
  - Hypoacusis [Unknown]
  - Off label use [Unknown]
